FAERS Safety Report 16056587 (Version 3)
Quarter: 2019Q1

REPORT INFORMATION
  Report Type: Report from Study
  Country: US (occurrence: US)
  Receive Date: 20190311
  Receipt Date: 20190320
  Transmission Date: 20190418
  Serious: Yes (Death, Hospitalization, Other)
  Sender: FDA-Public Use
  Company Number: US-GILEAD-2019-0395638

PATIENT
  Age: 62 Year
  Sex: Female
  Weight: 54.8 kg

DRUGS (19)
  1. MONTELUKAST [Concomitant]
     Active Substance: MONTELUKAST SODIUM
  2. OXYGEN. [Concomitant]
     Active Substance: OXYGEN
  3. FUROSEMIDE. [Concomitant]
     Active Substance: FUROSEMIDE
  4. POTASSIUM CHLORIDE. [Concomitant]
     Active Substance: POTASSIUM CHLORIDE
  5. BENZONATATE. [Concomitant]
     Active Substance: BENZONATATE
  6. FLUDROCORTISONE [Concomitant]
     Active Substance: FLUDROCORTISONE
  7. BENADRYL 24 D [Concomitant]
     Active Substance: LORATADINE\PSEUDOEPHEDRINE SULFATE
  8. MOMETASONE [Concomitant]
     Active Substance: MOMETASONE
  9. OMEPRAZOLE. [Concomitant]
     Active Substance: OMEPRAZOLE
  10. VALACYCLOVIR HCL [Concomitant]
     Active Substance: VALACYCLOVIR HYDROCHLORIDE
  11. VENTAVIS [Concomitant]
     Active Substance: ILOPROST
  12. CRESTOR [Concomitant]
     Active Substance: ROSUVASTATIN CALCIUM
  13. FERROUS SULFATE. [Concomitant]
     Active Substance: FERROUS SULFATE
  14. OXYBUTYNIN. [Concomitant]
     Active Substance: OXYBUTYNIN CHLORIDE
  15. SERTRALINE [Concomitant]
     Active Substance: SERTRALINE HYDROCHLORIDE
  16. SILDENAFIL. [Concomitant]
     Active Substance: SILDENAFIL
  17. AMBRISENTAN [Suspect]
     Active Substance: AMBRISENTAN
     Indication: PULMONARY ARTERIAL HYPERTENSION
     Dosage: 10 MG, QD
     Route: 065
     Dates: start: 20120203
  18. HYDROCORTISONE. [Concomitant]
     Active Substance: HYDROCORTISONE
  19. TRAZODONE [Concomitant]
     Active Substance: TRAZODONE HYDROCHLORIDE

REACTIONS (8)
  - Respiratory disorder [Fatal]
  - Dyspnoea [Unknown]
  - Right ventricular dilatation [Unknown]
  - Escherichia urinary tract infection [Unknown]
  - Cardiac arrest [Fatal]
  - Pulmonary mass [Not Recovered/Not Resolved]
  - Blood pressure abnormal [Unknown]
  - Chest pain [Unknown]
